FAERS Safety Report 9166645 (Version 1)
Quarter: 2013Q1

REPORT INFORMATION
  Report Type: Spontaneous
  Country: US (occurrence: US)
  Receive Date: 20130315
  Receipt Date: 20130315
  Transmission Date: 20140127
  Serious: Yes (Other)
  Sender: FDA-Public Use
  Company Number: CHPA2013US004425

PATIENT
  Age: 70 Year
  Sex: Female

DRUGS (1)
  1. EXCEDRIN EXTRA STRENGTH [Suspect]
     Indication: SINUS HEADACHE
     Dosage: 1 UNK, PRN
     Route: 048

REACTIONS (2)
  - Ulcer [Not Recovered/Not Resolved]
  - Underdose [Unknown]
